FAERS Safety Report 12615289 (Version 2)
Quarter: 2016Q4

REPORT INFORMATION
  Report Type: Spontaneous
  Country: GB (occurrence: GB)
  Receive Date: 20160802
  Receipt Date: 20161116
  Transmission Date: 20170207
  Serious: Yes (Other)
  Sender: FDA-Public Use
  Company Number: GB-JNJFOC-20160725560

PATIENT
  Sex: Female

DRUGS (1)
  1. INFLIXIMAB, RECOMBINANT [Suspect]
     Active Substance: INFLIXIMAB
     Indication: NEUROSARCOIDOSIS
     Dosage: STANDARD REGIME EMPLOYED AT WEEKS 0, 2,  6. FURTHER ADMINISTERED AT 8 WEEKLY INTERVALS IF NECESSARY.
     Route: 042

REACTIONS (3)
  - Tuberculosis [Unknown]
  - Off label use [Unknown]
  - Product use issue [Unknown]
